FAERS Safety Report 5964191-3 (Version None)
Quarter: 2008Q4

REPORT INFORMATION
  Report Type: 
  Country: None (occurrence: None)
  Receive Date: 20081121
  Receipt Date: 20081121
  Transmission Date: 20090506
  Serious: Yes (Other)
  Sender: FDA-Public Use
  Company Number: None

PATIENT
  Age: 22 Year
  Sex: Female
  Weight: 48.0813 kg

DRUGS (1)
  1. CREST PRO HEALTH TOOTHPASTE [Suspect]
     Indication: DENTAL DISORDER PROPHYLAXIS
     Dates: start: 20081107, end: 20081115

REACTIONS (11)
  - APPLICATION SITE PAIN [None]
  - GINGIVAL DISCOLOURATION [None]
  - GINGIVAL DISORDER [None]
  - GINGIVAL ERYTHEMA [None]
  - GINGIVAL PAIN [None]
  - GINGIVAL SWELLING [None]
  - LIP DISCOLOURATION [None]
  - LIP PAIN [None]
  - NO THERAPEUTIC RESPONSE [None]
  - TONGUE DISCOLOURATION [None]
  - TONGUE ULCERATION [None]
